FAERS Safety Report 6286973-3 (Version None)
Quarter: 2009Q3

REPORT INFORMATION
  Report Type: 
  Country: None (occurrence: None)
  Receive Date: 20090728
  Receipt Date: 20090720
  Transmission Date: 20100115
  Serious: Yes (Other)
  Sender: FDA-Public Use
  Company Number: US-ABBOTT-09P-163-0586384-00

PATIENT
  Sex: Female

DRUGS (2)
  1. HUMIRA [Suspect]
     Indication: DRUG USE FOR UNKNOWN INDICATION
     Dates: end: 20080101
  2. HUMIRA [Suspect]
     Dosage: UNKNOWN

REACTIONS (1)
  - KNEE ARTHROPLASTY [None]
